FAERS Safety Report 10011655 (Version 5)
Quarter: 2014Q2

REPORT INFORMATION
  Report Type: Report from Study
  Country: CA (occurrence: CA)
  Receive Date: 20140314
  Receipt Date: 20140611
  Transmission Date: 20141212
  Serious: Yes (Death, Hospitalization)
  Sender: FDA-Public Use
  Company Number: PHHY2014CA030852

PATIENT
  Age: 71 Year
  Sex: Male

DRUGS (4)
  1. SANDOSTATIN (OCTREOTIDE ACETATE) [Suspect]
     Indication: ASCITES
     Dosage: 100 UG, BID
     Route: 058
     Dates: start: 20131104
  2. SANDOSTATIN (OCTREOTIDE ACETATE) [Suspect]
     Indication: OFF LABEL USE
  3. SANDOSTATIN LAR [Suspect]
     Indication: ASCITES
     Dosage: 20 MG, QMO
     Route: 030
     Dates: start: 20131115
  4. SANDOSTATIN LAR [Suspect]
     Indication: OFF LABEL USE

REACTIONS (2)
  - Death [Fatal]
  - Gastric disorder [Unknown]
